FAERS Safety Report 6712728-9 (Version None)
Quarter: 2010Q2

REPORT INFORMATION
  Report Type: 
  Country: None (occurrence: None)
  Receive Date: 20100506
  Receipt Date: 20100427
  Transmission Date: 20101027
  Serious: Yes (Other)
  Sender: FDA-Public Use
  Company Number: US-JNJFOC-20091101660

PATIENT
  Sex: Female
  Weight: 102.06 kg

DRUGS (30)
  1. DURAGESIC-100 [Suspect]
     Indication: FIBROMYALGIA
     Route: 062
  2. DURAGESIC-100 [Suspect]
     Indication: ARTHRITIS
     Route: 062
  3. DURAGESIC-100 [Suspect]
     Indication: DRUG USE FOR UNKNOWN INDICATION
     Route: 062
  4. DURAGESIC-100 [Suspect]
     Route: 062
  5. DURAGESIC-100 [Suspect]
     Route: 062
  6. ALLEGRA [Concomitant]
     Route: 065
  7. TYLENOL (CAPLET) [Concomitant]
     Indication: PAIN
     Route: 065
  8. CARISOPRODOL [Concomitant]
     Indication: MUSCLE SPASMS
     Route: 065
  9. VYTORIN [Concomitant]
     Dosage: DOSE: 10/40
     Route: 065
  10. EFFEXOR XR [Concomitant]
     Route: 065
  11. DETROL LA [Concomitant]
     Indication: HYPERTONIC BLADDER
     Route: 065
  12. SULAR [Concomitant]
     Indication: SOCIAL PHOBIA
     Route: 065
  13. PREMARIN [Concomitant]
     Indication: HYPERTONIC BLADDER
     Route: 065
  14. PREMARIN [Concomitant]
     Indication: HOT FLUSH
     Route: 065
  15. LEVOTHYROXINE SODIUM [Concomitant]
     Indication: THYROID DISORDER
     Dosage: 112 UG AND 1 1/2 EVERY OTHER DAY
     Route: 065
  16. GABITRIL [Concomitant]
     Route: 065
  17. BUSPIRONE HCL [Concomitant]
     Dosage: 1 IN THE MORNING AND TWO AT BED TIME
     Route: 065
  18. MIRTAZAPINE [Concomitant]
     Route: 065
  19. NEXIUM [Concomitant]
     Route: 065
  20. BENICAR [Concomitant]
     Route: 065
  21. CLONAZEPAM [Concomitant]
     Route: 065
  22. PROTONIX [Concomitant]
     Indication: GASTROOESOPHAGEAL REFLUX DISEASE
     Route: 065
  23. ACTOS [Concomitant]
     Indication: DIABETES MELLITUS
     Route: 065
  24. AMBIEN CR [Concomitant]
     Indication: SLEEP DISORDER
     Route: 065
  25. FEXOFENADINE [Concomitant]
     Indication: MULTIPLE ALLERGIES
     Route: 065
  26. FEXOFENADINE [Concomitant]
     Route: 065
  27. EFFEXOR [Concomitant]
     Route: 065
  28. PROMETHAZINE [Concomitant]
     Indication: NAUSEA
     Route: 065
  29. VITAMIN TAB [Concomitant]
     Route: 065
  30. PANTOPRAZOLE [Concomitant]
     Indication: DYSPEPSIA
     Route: 065

REACTIONS (1)
  - CATARACT [None]
